FAERS Safety Report 9351760 (Version 1)
Quarter: 2013Q2

REPORT INFORMATION
  Report Type: Spontaneous
  Country: US (occurrence: US)
  Receive Date: 20130617
  Receipt Date: 20130617
  Transmission Date: 20140414
  Serious: Yes (Hospitalization)
  Sender: FDA-Public Use
  Company Number: US-BIOGENIDEC-2013BI050992

PATIENT
  Age: 57 Year
  Sex: Female

DRUGS (1)
  1. AVONEX [Suspect]
     Indication: MULTIPLE SCLEROSIS
     Route: 030
     Dates: start: 201005

REACTIONS (9)
  - Road traffic accident [Recovered/Resolved]
  - Injury [Unknown]
  - Hand fracture [Unknown]
  - Lower limb fracture [Unknown]
  - Hypoaesthesia [Unknown]
  - Retinal tear [Not Recovered/Not Resolved]
  - Blood pressure increased [Unknown]
  - Gallbladder disorder [Unknown]
  - Arrhythmia [Not Recovered/Not Resolved]
